FAERS Safety Report 5737173-4 (Version None)
Quarter: 2008Q2

REPORT INFORMATION
  Report Type: 
  Country: None (occurrence: None)
  Receive Date: 20080513
  Receipt Date: 20080513
  Transmission Date: 20081010
  Serious: Yes (Other)
  Sender: FDA-Public Use
  Company Number: None

PATIENT
  Sex: Female
  Weight: 58.9676 kg

DRUGS (1)
  1. LEVAQUIN [Suspect]
     Indication: URINARY TRACT INFECTION
     Dosage: 1 PILL 1 DAILY
     Dates: start: 20041120, end: 20041125

REACTIONS (5)
  - ARTHRALGIA [None]
  - PRURITUS [None]
  - PYREXIA [None]
  - RASH MACULAR [None]
  - SKIN EXFOLIATION [None]
